FAERS Safety Report 5076357-8 (Version None)
Quarter: 2006Q3

REPORT INFORMATION
  Report Type: 
  Country: None (occurrence: None)
  Receive Date: 20060807
  Receipt Date: 20060728
  Transmission Date: 20061208
  Serious: Yes (Other)
  Sender: FDA-Public Use
  Company Number: GBWYE479417MAR06

PATIENT
  Age: 44 Year
  Sex: Female

DRUGS (4)
  1. EFFEXOR XR [Suspect]
     Indication: DEPRESSION
     Dosage: 150 MG
     Route: 048
     Dates: start: 20040924, end: 20041004
  2. CLOZAPINE [Concomitant]
  3. AMISULPRIDE           (AMISULPRIDE) [Concomitant]
  4. KWELLS              (HYOSCINE HYDROBROMIDE) [Concomitant]

REACTIONS (1)
  - GRAND MAL CONVULSION [None]
